FAERS Safety Report 23939396 (Version 1)
Quarter: 2024Q2

REPORT INFORMATION
  Report Type: Spontaneous
  Country: JP (occurrence: JP)
  Receive Date: 20240605
  Receipt Date: 20240605
  Transmission Date: 20240716
  Serious: Yes (Other)
  Sender: FDA-Public Use
  Company Number: JP-SANDOZ INC.-SDZ2024JP053292

PATIENT
  Age: 73 Year
  Sex: Male

DRUGS (1)
  1. XYLOCAINE [Suspect]
     Active Substance: LIDOCAINE HYDROCHLORIDE\LIDOCAINE HYDROCHLORIDE ANHYDROUS
     Indication: Anaesthetic ophthalmic procedure
     Dosage: 3 ML
     Route: 056

REACTIONS (2)
  - Retinal artery occlusion [Recovered/Resolved]
  - Intra-ocular injection complication [Unknown]
